FAERS Safety Report 7930758-6 (Version None)
Quarter: 2011Q4

REPORT INFORMATION
  Report Type: 
  Country: None (occurrence: None)
  Receive Date: 20111121
  Receipt Date: 20111007
  Transmission Date: 20120403
  Serious: Yes (Life-Threatening, Hospitalization)
  Sender: FDA-Public Use
  Company Number: US-GLAXOSMITHKLINE-A0935024B

PATIENT
  Age: 12 Year
  Sex: Female
  Weight: 44.8 kg

DRUGS (10)
  1. CYTARABINE [Suspect]
     Indication: T-CELL TYPE ACUTE LEUKAEMIA
     Dosage: 75MGM2 CYCLIC
     Route: 042
  2. DOXORUBICIN HCL [Suspect]
     Indication: T-CELL TYPE ACUTE LEUKAEMIA
     Dosage: 25MGM2 CYCLIC
     Route: 042
     Dates: start: 20110218
  3. METHOTREXATE [Suspect]
     Indication: T-CELL TYPE ACUTE LEUKAEMIA
     Route: 037
     Dates: start: 20110218
  4. THIOGUANINE [Suspect]
     Indication: T-CELL TYPE ACUTE LEUKAEMIA
     Dosage: 60MGM2 CYCLIC
     Route: 048
  5. VINCRISTINE [Suspect]
     Indication: T-CELL TYPE ACUTE LEUKAEMIA
     Dosage: 1.5MGM2 CYCLIC
     Route: 042
     Dates: start: 20110218
  6. CYCLOPHOSPHAMIDE [Suspect]
     Indication: T-CELL TYPE ACUTE LEUKAEMIA
     Dosage: 1000MGM2 CYCLIC
     Route: 042
  7. RADIATION [Suspect]
     Indication: T-CELL TYPE ACUTE LEUKAEMIA
     Route: 061
  8. DEXAMETHASONE [Suspect]
     Indication: T-CELL TYPE ACUTE LEUKAEMIA
     Dosage: 5MGM2 TWICE PER DAY
     Route: 048
     Dates: start: 20110218
  9. NELARABINE [Suspect]
     Indication: HEADACHE
     Dosage: 650MGM2 CYCLIC
     Route: 042
  10. PEG-ASPARAGINASE [Suspect]
     Indication: T-CELL TYPE ACUTE LEUKAEMIA
     Route: 030

REACTIONS (4)
  - PLEURAL EFFUSION [None]
  - SEPSIS [None]
  - HYPOTENSION [None]
  - ABDOMINAL PAIN [None]
